FAERS Safety Report 20033092 (Version 7)
Quarter: 2022Q2

REPORT INFORMATION
  Report Type: Report from Study
  Country: IT (occurrence: IT)
  Receive Date: 20211104
  Receipt Date: 20220528
  Transmission Date: 20220721
  Serious: Yes (Other)
  Sender: FDA-Public Use
  Company Number: IT-NOVARTISPH-NVSC2021IT222113

PATIENT
  Age: 42 Year
  Sex: Female

DRUGS (3)
  1. COSENTYX [Suspect]
     Active Substance: SECUKINUMAB
     Indication: Psoriasis
     Dosage: 300 MG, QMO (EVERY 28 DAYS)
     Route: 065
     Dates: start: 20210710
  2. COSENTYX [Suspect]
     Active Substance: SECUKINUMAB
     Dosage: 300 MG
     Route: 065
  3. COSENTYX [Suspect]
     Active Substance: SECUKINUMAB
     Dosage: 300 MG
     Route: 065
     Dates: start: 20220512

REACTIONS (10)
  - Hypertension [Unknown]
  - Immunoglobulins increased [Unknown]
  - Bronchitis [Unknown]
  - Rash papular [Not Recovered/Not Resolved]
  - Ill-defined disorder [Unknown]
  - Pruritus [Unknown]
  - Symptom recurrence [Not Recovered/Not Resolved]
  - Erythema [Unknown]
  - Hot flush [Unknown]
  - Psoriasis [Unknown]

NARRATIVE: CASE EVENT DATE: 20220512
